APPROVED DRUG PRODUCT: OLANZAPINE
Active Ingredient: OLANZAPINE
Strength: 20MG
Dosage Form/Route: TABLET;ORAL
Application: A077301 | Product #001
Applicant: IVAX PHARMACEUTICALS INC
Approved: Apr 29, 2015 | RLD: No | RS: No | Type: DISCN